FAERS Safety Report 15300841 (Version 1)
Quarter: 2018Q3

REPORT INFORMATION
  Report Type: Report from Study
  Country: US (occurrence: US)
  Receive Date: 20180821
  Receipt Date: 20180821
  Transmission Date: 20181010
  Serious: Yes (Hospitalization)
  Sender: FDA-Public Use
  Company Number: US-JNJFOC-20180818819

PATIENT
  Age: 6 Year
  Sex: Female
  Weight: 21.2 kg

DRUGS (5)
  1. NYSTATIN. [Concomitant]
     Active Substance: NYSTATIN
     Route: 065
  2. 5?ASA [Concomitant]
     Active Substance: MESALAMINE
     Route: 065
  3. REMICADE [Suspect]
     Active Substance: INFLIXIMAB
     Indication: INFLAMMATORY BOWEL DISEASE
     Route: 042
     Dates: start: 20160512, end: 20170519
  4. ENTYVIO [Concomitant]
     Active Substance: VEDOLIZUMAB
     Dosage: RE?INITIATED ON AN UNSPECIFIED DATE AND WAS CONTINUING
     Route: 065
  5. ENTYVIO [Concomitant]
     Active Substance: VEDOLIZUMAB
     Dosage: DISCONTINUED ON 06?FEB?2018 DUE TO SURGERY (LAST DOSE ON 17?JAN?2018)
     Route: 065
     Dates: start: 20170519, end: 20180206

REACTIONS (1)
  - Gastrointestinal stoma complication [Recovered/Resolved]

NARRATIVE: CASE EVENT DATE: 20180810
